FAERS Safety Report 6884067-7 (Version None)
Quarter: 2010Q3

REPORT INFORMATION
  Report Type: 
  Country: None (occurrence: None)
  Receive Date: 20100727
  Receipt Date: 20100713
  Transmission Date: 20110219
  Serious: Yes (Other)
  Sender: FDA-Public Use
  Company Number: 7011031

PATIENT
  Age: 49 Year
  Sex: Male
  Weight: 159 kg

DRUGS (4)
  1. REBIF [Suspect]
     Indication: MULTIPLE SCLEROSIS
     Dosage: SUBCUTANEOUS, 44 MCG, 3 IN 1 WK, SUBCUTANEOUS
     Route: 058
     Dates: start: 20040101, end: 20080101
  2. REBIF [Suspect]
     Indication: MULTIPLE SCLEROSIS
     Dosage: SUBCUTANEOUS, 44 MCG, 3 IN 1 WK, SUBCUTANEOUS
     Route: 058
     Dates: start: 20081003, end: 20080101
  3. STEROIDS (CORTICOSTEROIDS) [Suspect]
     Indication: MULTIPLE SCLEROSIS
     Dates: start: 20080101
  4. METOPROLOL SUCCINATE [Concomitant]

REACTIONS (1)
  - BLOOD GLUCOSE INCREASED [None]
